FAERS Safety Report 5924599-9 (Version None)
Quarter: 2008Q4

REPORT INFORMATION
  Report Type: 
  Country: None (occurrence: None)
  Receive Date: 20081020
  Receipt Date: 20081013
  Transmission Date: 20090506
  Serious: Yes (Hospitalization)
  Sender: FDA-Public Use
  Company Number: DE-AMGEN-US312946

PATIENT
  Sex: Female
  Weight: 37 kg

DRUGS (3)
  1. ENBREL [Suspect]
     Indication: MUSCULOSKELETAL PAIN
     Route: 058
     Dates: start: 20070301, end: 20080701
  2. ENBREL [Suspect]
     Indication: POLYARTHRITIS
  3. NAPROXEN [Concomitant]
     Indication: MUSCULOSKELETAL PAIN
     Route: 048

REACTIONS (1)
  - CROHN'S DISEASE [None]
